FAERS Safety Report 14373916 (Version 2)
Quarter: 2018Q1

REPORT INFORMATION
  Report Type: Spontaneous
  Country: US (occurrence: US)
  Receive Date: 20180111
  Receipt Date: 20180322
  Transmission Date: 20180509
  Serious: No
  Sender: FDA-Public Use
  Company Number: US-ASTRAZENECA-2018SE02523

PATIENT
  Age: 35 Month
  Sex: Female
  Weight: 15 kg

DRUGS (2)
  1. ALBUTEROL. [Concomitant]
     Active Substance: ALBUTEROL
     Dosage: INHALER OR INHALER OR NEBULIZER AS NEEDED FOR RESCUENEBULIZER AS NEEDED FOR RESCUE
  2. SYMBICORT [Suspect]
     Active Substance: BUDESONIDE\FORMOTEROL FUMARATE DIHYDRATE
     Indication: ASTHMA
     Dosage: SYMBICORT 80/4.5MCG 2 PUFFS BID
     Route: 055
     Dates: start: 201702

REACTIONS (6)
  - Drug administered to patient of inappropriate age [Unknown]
  - Off label use [Unknown]
  - Influenza [Unknown]
  - Device failure [Unknown]
  - Alopecia [Unknown]
  - Wrong technique in device usage process [Unknown]

NARRATIVE: CASE EVENT DATE: 201708
